FAERS Safety Report 21453635 (Version 2)
Quarter: 2022Q4

REPORT INFORMATION
  Report Type: Spontaneous
  Country: IT (occurrence: IT)
  Receive Date: 20221013
  Receipt Date: 20221028
  Transmission Date: 20230113
  Serious: Yes (Other)
  Sender: FDA-Public Use
  Company Number: IT-TEVA-2022-IT-2082424

PATIENT
  Age: 35 Year
  Sex: Male

DRUGS (4)
  1. CISPLATIN [Suspect]
     Active Substance: CISPLATIN
     Indication: Extragonadal primary seminoma (pure)
     Dosage: DOSAGE: ADMINISTERED ON DAYS 1-5 (BEP PROTOCOL)
     Route: 042
  2. ETOPOSIDE [Suspect]
     Active Substance: ETOPOSIDE
     Indication: Extragonadal primary seminoma (pure)
     Dosage: DOSAGE: ADMINISTERED ON DAYS 1-5 (BEP PROTOCOL)
     Route: 042
  3. BLEOMYCIN [Suspect]
     Active Substance: BLEOMYCIN SULFATE
     Indication: Extragonadal primary seminoma (pure)
     Dosage: DOSAGE: 30UNITS/DAY ON DAY 2, 9 AND 16 (BEP PROTOCOL)
     Route: 042
  4. ESOMEPRAZOLE [Concomitant]
     Active Substance: ESOMEPRAZOLE
     Indication: Product used for unknown indication
     Route: 065

REACTIONS (1)
  - Deep vein thrombosis [Recovering/Resolving]
